FAERS Safety Report 14448582 (Version 1)
Quarter: 2018Q1

REPORT INFORMATION
  Report Type: Spontaneous
  Country: US (occurrence: US)
  Receive Date: 20180126
  Receipt Date: 20180126
  Transmission Date: 20180509
  Serious: Yes (Other)
  Sender: FDA-Public Use
  Company Number: US-SHIRE-US201801722

PATIENT
  Age: 34 Year
  Sex: Female

DRUGS (1)
  1. CUVITRU [Suspect]
     Active Substance: HUMAN IMMUNOGLOBULIN G
     Indication: IMMUNODEFICIENCY COMMON VARIABLE
     Dosage: 20 G, 1X/WEEK
     Route: 058
     Dates: start: 20171129

REACTIONS (3)
  - Blood pressure increased [Unknown]
  - Rash erythematous [Unknown]
  - Malaise [Unknown]

NARRATIVE: CASE EVENT DATE: 20180110
